APPROVED DRUG PRODUCT: SILDENAFIL CITRATE
Active Ingredient: SILDENAFIL CITRATE
Strength: EQ 25MG BASE
Dosage Form/Route: TABLET;ORAL
Application: A201171 | Product #001
Applicant: MYLAN PHARMACEUTICALS INC
Approved: Mar 25, 2019 | RLD: No | RS: No | Type: DISCN